FAERS Safety Report 11717662 (Version 7)
Quarter: 2016Q4

REPORT INFORMATION
  Report Type: Spontaneous
  Country: US (occurrence: US)
  Receive Date: 20151110
  Receipt Date: 20161116
  Transmission Date: 20170206
  Serious: Yes (Other)
  Sender: FDA-Public Use
  Company Number: PHEH2015US022973

PATIENT
  Sex: Female
  Weight: 64.85 kg

DRUGS (5)
  1. ONDANSETRON DR REDDY [Suspect]
     Active Substance: ONDANSETRON
     Indication: VOMITING IN PREGNANCY
     Dosage: 8 MG, PRN
     Route: 048
     Dates: start: 20130613, end: 201309
  2. ONDANSETRON HYDROCHLORIDE. [Suspect]
     Active Substance: ONDANSETRON HYDROCHLORIDE
     Indication: VOMITING IN PREGNANCY
     Dosage: UNK
     Route: 048
  3. ONDANSETRON HYDROCHLORIDE. [Suspect]
     Active Substance: ONDANSETRON HYDROCHLORIDE
     Indication: VOMITING IN PREGNANCY
     Route: 042
  4. ZOFRAN [Suspect]
     Active Substance: ONDANSETRON HYDROCHLORIDE
     Dosage: UNK
     Route: 065
     Dates: start: 201305, end: 201312
  5. ZOFRAN [Suspect]
     Active Substance: ONDANSETRON HYDROCHLORIDE
     Indication: VOMITING IN PREGNANCY
     Dosage: 8 MG, UNK
     Route: 048
     Dates: start: 20130413

REACTIONS (18)
  - Cough [Unknown]
  - Anxiety [Unknown]
  - Dizziness [Unknown]
  - Product use issue [Unknown]
  - Headache [Unknown]
  - Fall [Unknown]
  - Injury [Unknown]
  - Oropharyngeal pain [Unknown]
  - Visual impairment [Unknown]
  - Scar [Unknown]
  - Diarrhoea [Unknown]
  - Pain in extremity [Unknown]
  - Maternal exposure during pregnancy [Unknown]
  - Pain [Unknown]
  - Hepatitis C [Unknown]
  - Anhedonia [Unknown]
  - Emotional distress [Unknown]
  - Peripheral swelling [Unknown]
